FAERS Safety Report 4303422-2 (Version None)
Quarter: 2004Q1

REPORT INFORMATION
  Report Type: 
  Country: None (occurrence: None)
  Receive Date: 20040223
  Receipt Date: 20040213
  Transmission Date: 20041129
  Serious: Yes (Hospitalization)
  Sender: FDA-Public Use
  Company Number: OMPQ-NO-0401S-0095

PATIENT
  Age: 56 Year
  Sex: Female

DRUGS (1)
  1. OMNIPAQUE (IOHEXOL) [Suspect]
     Indication: HAEMATURIA
     Dosage: 50 ML, SINGLE DOSE, I.V.
     Route: 042
     Dates: start: 20040115, end: 20040115

REACTIONS (7)
  - BLOOD PRESSURE INCREASED [None]
  - CONTRAST MEDIA REACTION [None]
  - DISCOMFORT [None]
  - ELECTROCARDIOGRAM ST SEGMENT ABNORMAL [None]
  - PALPITATIONS [None]
  - SHOCK [None]
  - THIRST [None]
